FAERS Safety Report 9055033 (Version 2)
Quarter: 2013Q1

REPORT INFORMATION
  Report Type: Spontaneous
  Country: ES (occurrence: ES)
  Receive Date: 20130206
  Receipt Date: 20130329
  Transmission Date: 20140127
  Serious: Yes (Hospitalization)
  Sender: FDA-Public Use
  Company Number: ES-009507513-1302ESP000762

PATIENT
  Age: 60 Year
  Sex: Male
  Weight: 80 kg

DRUGS (4)
  1. VICTRELIS [Suspect]
     Indication: HEPATITIS C
     Dosage: 4 DF, Q8H
     Route: 048
     Dates: start: 20120626, end: 20130119
  2. REBETOL [Suspect]
     Dosage: 3 DF, QD
     Dates: start: 20120529, end: 20130119
  3. PEGINTRON [Suspect]
     Indication: HEPATITIS C
     Dosage: 120 MICROGRAM, QW
     Dates: start: 20120529, end: 20130119
  4. NEORECORMON [Concomitant]
     Dosage: UNK, QM
     Dates: start: 20120810

REACTIONS (2)
  - Appendicitis [Recovering/Resolving]
  - Appendicectomy [Recovering/Resolving]
